FAERS Safety Report 25981006 (Version 1)
Quarter: 2025Q4

REPORT INFORMATION
  Report Type: Spontaneous
  Country: JP (occurrence: JP)
  Receive Date: 20251030
  Receipt Date: 20251030
  Transmission Date: 20260118
  Serious: Yes (Other)
  Sender: BRISTOL MYERS SQUIBB
  Company Number: JP-BRISTOL-MYERS SQUIBB COMPANY-2025-145493

PATIENT
  Age: 85 Year
  Sex: Male
  Weight: 62 kg

DRUGS (12)
  1. ELIQUIS [Suspect]
     Active Substance: APIXABAN
     Indication: Atrial fibrillation
     Route: 048
  2. PILSICAINIDE HCL [Concomitant]
     Indication: Product used for unknown indication
     Route: 048
  3. DILTIAZEM [Concomitant]
     Active Substance: DILTIAZEM
     Indication: Product used for unknown indication
     Route: 048
  4. AMLODIPINE [Concomitant]
     Active Substance: AMLODIPINE BESYLATE
     Indication: Product used for unknown indication
     Route: 048
  5. CANDESARTAN [Concomitant]
     Active Substance: CANDESARTAN
     Indication: Product used for unknown indication
     Route: 048
  6. VOGLIBOSE [Concomitant]
     Active Substance: VOGLIBOSE
     Indication: Product used for unknown indication
     Route: 048
  7. ALLOPURINOL [Concomitant]
     Active Substance: ALLOPURINOL
     Indication: Product used for unknown indication
     Route: 048
  8. RABEPRAZOLE [Concomitant]
     Active Substance: RABEPRAZOLE
     Indication: Product used for unknown indication
     Route: 048
  9. MOSAPRIDE [Concomitant]
     Active Substance: MOSAPRIDE
     Indication: Product used for unknown indication
     Route: 048
  10. METHYLCOBALAMIN [Concomitant]
     Active Substance: METHYLCOBALAMIN
     Indication: Product used for unknown indication
     Route: 048
  11. DIPHENIDOL [Concomitant]
     Active Substance: DIPHENIDOL
     Indication: Product used for unknown indication
     Route: 048
  12. TOCOPHERYL NICOTINATE, D-.ALPHA. [Concomitant]
     Active Substance: TOCOPHERYL NICOTINATE, D-.ALPHA.
     Indication: Product used for unknown indication
     Route: 048

REACTIONS (5)
  - Haemorrhagic erosive gastritis [Unknown]
  - Melaena [Unknown]
  - Prothrombin time prolonged [Unknown]
  - Interstitial lung disease [Unknown]
  - Renal impairment [Unknown]
